FAERS Safety Report 23473071 (Version 2)
Quarter: 2024Q1

REPORT INFORMATION
  Report Type: Spontaneous
  Country: US (occurrence: US)
  Receive Date: 20240203
  Receipt Date: 20240226
  Transmission Date: 20240410
  Serious: Yes (Hospitalization)
  Sender: FDA-Public Use
  Company Number: US-TEVA-VS-3150735

PATIENT
  Age: 77 Year
  Sex: Female

DRUGS (1)
  1. OLMESARTAN [Suspect]
     Active Substance: OLMESARTAN
     Indication: Hypertension
     Route: 065

REACTIONS (10)
  - Ketosis [Unknown]
  - Electrolyte imbalance [Unknown]
  - Duodenitis [Recovered/Resolved]
  - Weight decreased [Unknown]
  - Generalised oedema [Unknown]
  - Enteritis [Recovered/Resolved]
  - Metabolic encephalopathy [Unknown]
  - Erosive duodenitis [Recovered/Resolved]
  - Hypotension [Unknown]
  - Pneumatosis [Recovered/Resolved]
